FAERS Safety Report 4905070-X (Version None)
Quarter: 2006Q1

REPORT INFORMATION
  Report Type: 
  Country: None (occurrence: None)
  Receive Date: 20060208
  Receipt Date: 20051110
  Transmission Date: 20060701
  Serious: Yes (Other)
  Sender: FDA-Public Use
  Company Number: US-GLAXOSMITHKLINE-A0581826A

PATIENT
  Age: 13 Year
  Sex: Male

DRUGS (5)
  1. PAROXETINE HCL [Suspect]
     Dosage: 2.5MG PER DAY
     Route: 048
  2. PAXIL [Suspect]
     Dosage: .25TSP PER DAY
     Route: 048
  3. PAXIL [Suspect]
     Route: 048
  4. RITALIN [Concomitant]
  5. VITAMIN [Concomitant]

REACTIONS (6)
  - AGGRESSION [None]
  - DIZZINESS [None]
  - DRUG INEFFECTIVE [None]
  - FATIGUE [None]
  - FEELING ABNORMAL [None]
  - HOSTILITY [None]
